FAERS Safety Report 8664193 (Version 2)
Quarter: 2012Q4

REPORT INFORMATION
  Report Type: Report from Study
  Country: CA (occurrence: CA)
  Receive Date: 20120713
  Receipt Date: 20120919
  Transmission Date: 20130627
  Serious: Yes (Hospitalization)
  Sender: FDA-Public Use
  Company Number: CA-ABBOTT-12P-028-0953773-00

PATIENT
  Age: 74 None
  Sex: Male
  Weight: 106.24 kg

DRUGS (1)
  1. LUPRON DEPOT 30 MG [Suspect]
     Indication: PRODUCT USED FOR UNKNOWN INDICATION
     Route: 030
     Dates: start: 20110704

REACTIONS (3)
  - Intercapillary glomerulosclerosis [Recovering/Resolving]
  - Renal failure acute [Recovering/Resolving]
  - Asthenia [Recovering/Resolving]
